FAERS Safety Report 6970249-2 (Version None)
Quarter: 2010Q3

REPORT INFORMATION
  Report Type: 
  Country: None (occurrence: None)
  Receive Date: 20100908
  Receipt Date: 20100825
  Transmission Date: 20110219
  Serious: Yes (Hospitalization, Other)
  Sender: FDA-Public Use
  Company Number: PHHY2010BR56730

PATIENT
  Sex: Female

DRUGS (1)
  1. EXFORGE [Suspect]
     Route: 048

REACTIONS (7)
  - ABDOMINAL DISCOMFORT [None]
  - BALANCE DISORDER [None]
  - CHEST PAIN [None]
  - DRUG DOSE OMISSION [None]
  - HYPERTENSION [None]
  - INFARCTION [None]
  - PAIN [None]
